FAERS Safety Report 22000001 (Version 1)
Quarter: 2023Q1

REPORT INFORMATION
  Report Type: Report from Study
  Country: US (occurrence: None)
  Receive Date: 20230216
  Receipt Date: 20230216
  Transmission Date: 20230418
  Serious: Yes (Hospitalization)
  Sender: FDA-Public Use
  Company Number: US-Eisai Medical Research-EC-2023-133412

PATIENT
  Age: 72 Year
  Sex: Male
  Weight: 80.65 kg

DRUGS (2)
  1. ERIBULIN [Suspect]
     Active Substance: ERIBULIN
     Indication: Transitional cell carcinoma
     Dosage: FREQUENCY, ROUTE, AND FORM UNKNOWN
     Dates: start: 20230105, end: 20230120
  2. GEMCITABINE HYDROCHLORIDE [Suspect]
     Active Substance: GEMCITABINE HYDROCHLORIDE
     Indication: Transitional cell carcinoma
     Dosage: FREQUENCY, ROUTE, AND FORM UNKNOWN
     Dates: start: 20230105, end: 20230120

REACTIONS (2)
  - Urinary tract infection [Recovering/Resolving]
  - Urinary tract stoma complication [Recovering/Resolving]

NARRATIVE: CASE EVENT DATE: 20230109
